FAERS Safety Report 24283551 (Version 1)
Quarter: 2024Q3

REPORT INFORMATION
  Report Type: Spontaneous
  Country: IL (occurrence: IL)
  Receive Date: 20240904
  Receipt Date: 20240904
  Transmission Date: 20241016
  Serious: Yes (Disabling)
  Sender: NOVARTIS
  Company Number: IL-002147023-NVSC2024IL176171

PATIENT
  Age: 77 Year
  Sex: Female

DRUGS (1)
  1. FEMARA [Suspect]
     Active Substance: LETROZOLE
     Indication: Product used for unknown indication
     Dosage: 2.5 UNK
     Route: 065
     Dates: start: 20211110

REACTIONS (2)
  - Joint swelling [Unknown]
  - Arthralgia [Unknown]
